FAERS Safety Report 6099246-9 (Version None)
Quarter: 2009Q1

REPORT INFORMATION
  Report Type: 
  Country: None (occurrence: None)
  Receive Date: 20090303
  Receipt Date: 20090225
  Transmission Date: 20090719
  Serious: Yes (Hospitalization, Other)
  Sender: FDA-Public Use
  Company Number: DE-BAXTER-2009BH003178

PATIENT
  Age: 80 Year
  Sex: Female
  Weight: 60 kg

DRUGS (11)
  1. METRONIDAZOLE [Suspect]
     Indication: PNEUMONIA
     Route: 042
     Dates: start: 20080826, end: 20081001
  2. ROCEPHIN [Suspect]
     Indication: PNEUMONIA
     Route: 042
     Dates: start: 20080826, end: 20080903
  3. PREDNISOLONE [Suspect]
     Indication: COLITIS ULCERATIVE
     Route: 048
     Dates: start: 20080824
  4. PREDNISOLONE [Suspect]
     Route: 048
  5. MESALAMINE [Concomitant]
     Indication: COLITIS ULCERATIVE
     Route: 048
     Dates: start: 20080824
  6. METHIZOL [Concomitant]
     Indication: HYPERTHYROIDISM
     Route: 048
     Dates: start: 20080824
  7. REMINYL /UNK/ [Concomitant]
     Indication: DEMENTIA
     Route: 048
     Dates: start: 20070101
  8. PANTOPRAZOLE [Concomitant]
     Indication: PROPHYLAXIS AGAINST GASTROINTESTINAL ULCER
     Route: 048
     Dates: start: 20080823
  9. NOVONORM [Concomitant]
     Indication: TYPE 2 DIABETES MELLITUS
     Route: 048
     Dates: start: 20070101
  10. RAMIPRIL [Concomitant]
     Indication: HYPERTENSION
     Route: 048
     Dates: start: 19900101
  11. ACETYLSALICYLIC ACID [Concomitant]
     Indication: ISCHAEMIC HEART DISEASE PROPHYLAXIS
     Route: 048
     Dates: start: 19990101

REACTIONS (1)
  - CLOSTRIDIAL INFECTION [None]
